FAERS Safety Report 7802004-5 (Version None)
Quarter: 2011Q4

REPORT INFORMATION
  Report Type: 
  Country: None (occurrence: None)
  Receive Date: 20111007
  Receipt Date: 20111004
  Transmission Date: 20120403
  Serious: Yes (Death)
  Sender: FDA-Public Use
  Company Number: PHEH2011US05948

PATIENT
  Age: 35 Year
  Sex: Female
  Weight: 49.887 kg

DRUGS (2)
  1. PULMOZYME [Concomitant]
  2. TOBI [Suspect]
     Dosage: 300 MG, BID EVERY OTHER MONTH
     Dates: start: 20101123, end: 20111004

REACTIONS (1)
  - DEATH [None]
